FAERS Safety Report 11861818 (Version 2)
Quarter: 2015Q4

REPORT INFORMATION
  Report Type: Spontaneous
  Country: US (occurrence: US)
  Receive Date: 20151222
  Receipt Date: 20151230
  Transmission Date: 20160305
  Serious: No
  Sender: FDA-Public Use
  Company Number: US-009507513-1512USA006629

PATIENT
  Age: 17 Year
  Sex: Female
  Weight: 66.67 kg

DRUGS (2)
  1. NEXPLANON [Suspect]
     Active Substance: ETONOGESTREL
     Indication: CONTRACEPTION
     Dosage: UNK
     Route: 059
     Dates: start: 20151202
  2. NEXPLANON [Suspect]
     Active Substance: ETONOGESTREL
     Dosage: UNK
     Route: 059
     Dates: start: 201512

REACTIONS (6)
  - Medical device complication [Not Recovered/Not Resolved]
  - Inappropriate schedule of drug administration [Unknown]
  - Implant site haemorrhage [Recovered/Resolved]
  - Scab [Unknown]
  - Metrorrhagia [Unknown]
  - Overdose [Unknown]

NARRATIVE: CASE EVENT DATE: 201512
